FAERS Safety Report 9682711 (Version 2)
Quarter: 2013Q4

REPORT INFORMATION
  Report Type: Spontaneous
  Country: GB (occurrence: GB)
  Receive Date: 20131026
  Receipt Date: 20131026
  Transmission Date: 20140711
  Serious: Yes (Other)
  Sender: FDA-Public Use
  Company Number: GB-DRREDDYS-GER/UKI/13/0028586

PATIENT
  Age: 61 Year
  Sex: Female
  Weight: 61.6 kg

DRUGS (3)
  1. CLOPIDOGREL [Suspect]
     Indication: RETINAL ARTERY OCCLUSION
     Route: 048
     Dates: start: 20121012, end: 20121031
  2. ADCAL-D3 [Concomitant]
     Indication: PRODUCT USED FOR UNKNOWN INDICATION
  3. LEVOTHYROXINE [Concomitant]
     Indication: PRODUCT USED FOR UNKNOWN INDICATION

REACTIONS (4)
  - Vertigo [Recovering/Resolving]
  - Headache [Unknown]
  - Dissociation [Unknown]
  - Migraine with aura [Recovering/Resolving]
